FAERS Safety Report 7197333-5 (Version None)
Quarter: 2010Q4

REPORT INFORMATION
  Report Type: 
  Country: None (occurrence: None)
  Receive Date: 20101213
  Receipt Date: 20101207
  Transmission Date: 20110411
  Serious: Yes (Disabling)
  Sender: FDA-Public Use
  Company Number: 2010SP063519

PATIENT
  Age: 67 Year
  Sex: Male

DRUGS (5)
  1. TEMODAL [Suspect]
     Indication: GLIOBLASTOMA
     Dosage: PO
     Route: 048
     Dates: start: 20090901, end: 20100401
  2. TEMODAL [Suspect]
     Indication: RECURRENT CANCER
     Dosage: PO
     Route: 048
     Dates: start: 20090901, end: 20100401
  3. AVASTIN [Suspect]
     Indication: GLIOBLASTOMA
     Dosage: IV
     Route: 042
     Dates: start: 20100401, end: 20100901
  4. AVASTIN [Suspect]
     Indication: RECURRENT CANCER
     Dosage: IV
     Route: 042
     Dates: start: 20100401, end: 20100901
  5. AVASTIN [Concomitant]

REACTIONS (6)
  - DRUG TOXICITY [None]
  - GLIOBLASTOMA [None]
  - HAEMATOTOXICITY [None]
  - OPTIC NEUROPATHY [None]
  - RECURRENT CANCER [None]
  - THROMBOCYTOPENIA [None]
